FAERS Safety Report 7919079-5 (Version None)
Quarter: 2011Q4

REPORT INFORMATION
  Report Type: 
  Country: None (occurrence: None)
  Receive Date: 20111116
  Receipt Date: 20111107
  Transmission Date: 20120403
  Serious: Yes (Disabling)
  Sender: FDA-Public Use
  Company Number: CA-ASTRAZENECA-2011SE67477

PATIENT
  Age: 39 Year
  Sex: Female
  Weight: 83 kg

DRUGS (8)
  1. LITHIUM [Concomitant]
     Route: 065
  2. SEROQUEL [Suspect]
     Route: 048
  3. SEROQUEL [Suspect]
     Route: 048
  4. QUETIAPINE [Suspect]
     Route: 065
  5. CELEXA [Concomitant]
     Route: 065
  6. SEROQUEL [Suspect]
     Route: 048
  7. ATIVAN [Concomitant]
     Route: 065
  8. TRIFLUOPERAZINE HCL [Concomitant]
     Route: 065

REACTIONS (5)
  - WEIGHT INCREASED [None]
  - TREMOR [None]
  - FALL [None]
  - TYPE 2 DIABETES MELLITUS [None]
  - CONFUSIONAL STATE [None]
